FAERS Safety Report 10621050 (Version 1)
Quarter: 2014Q4

REPORT INFORMATION
  Report Type: Report from Study
  Country: NL (occurrence: NL)
  Receive Date: 20141203
  Receipt Date: 20141203
  Transmission Date: 20150529
  Serious: Yes (Death)
  Sender: FDA-Public Use
  Company Number: NL-AMGEN-NLDSL2014093381

PATIENT
  Age: 64 Year
  Sex: Male

DRUGS (1)
  1. NEULASTA [Suspect]
     Active Substance: PEGFILGRASTIM
     Indication: PROPHYLAXIS
     Dosage: 10 MG/ML, Q3WK
     Route: 058
     Dates: start: 20141026, end: 20141128

REACTIONS (1)
  - Death [Fatal]

NARRATIVE: CASE EVENT DATE: 20141128
